FAERS Safety Report 7762497-9 (Version None)
Quarter: 2011Q3

REPORT INFORMATION
  Report Type: 
  Country: None (occurrence: None)
  Receive Date: 20110920
  Receipt Date: 20110830
  Transmission Date: 20111222
  Serious: No
  Sender: FDA-Public Use
  Company Number: US-MYLANLABS-2011S1018325

PATIENT
  Age: 15 Year
  Sex: Female

DRUGS (3)
  1. PROTOPIC [Suspect]
     Indication: PSORIASIS
     Route: 061
     Dates: start: 20110728
  2. HYDROXYZINE HYDROCHLORIDE [Suspect]
     Indication: PSORIASIS
     Route: 048
     Dates: start: 20110728, end: 20110806
  3. PREDNISONE [Suspect]
     Indication: PSORIASIS
     Route: 048
     Dates: start: 20110728, end: 20110801

REACTIONS (1)
  - DRUG SCREEN FALSE POSITIVE [None]
